FAERS Safety Report 15297615 (Version 1)
Quarter: 2018Q3

REPORT INFORMATION
  Report Type: Spontaneous
  Country: IT (occurrence: IT)
  Receive Date: 20180820
  Receipt Date: 20180820
  Transmission Date: 20181010
  Serious: Yes (Hospitalization)
  Sender: FDA-Public Use
  Company Number: IT-SA-2018SA219702

PATIENT
  Age: 86 Year
  Sex: Female

DRUGS (5)
  1. LENDORMIN [Suspect]
     Active Substance: BROTIZOLAM
     Indication: INTENTIONAL SELF-INJURY
     Dosage: 50 DF, TOTAL
     Route: 048
     Dates: start: 20170724, end: 20170724
  2. EUTIROX [Concomitant]
     Active Substance: LEVOTHYROXINE SODIUM
     Dosage: UNK UNK, UNK
     Route: 065
  3. DELORAZEPAM [Suspect]
     Active Substance: DELORAZEPAM
     Indication: INTENTIONAL SELF-INJURY
     Dosage: 40 ML, TOTAL
     Route: 048
     Dates: start: 20170724, end: 20170724
  4. LENDORMIN [Suspect]
     Active Substance: BROTIZOLAM
     Dosage: 50 DF, TOTAL
     Route: 048
     Dates: start: 20170724, end: 20170724
  5. STILNOX [Suspect]
     Active Substance: ZOLPIDEM TARTRATE
     Indication: INTENTIONAL SELF-INJURY
     Dosage: 7 DF, TOTAL
     Route: 048
     Dates: start: 20170724, end: 20170724

REACTIONS (2)
  - Drug abuse [Unknown]
  - Depressed level of consciousness [Recovering/Resolving]

NARRATIVE: CASE EVENT DATE: 20170724
